FAERS Safety Report 9580137 (Version 1)
Quarter: 2013Q4

REPORT INFORMATION
  Report Type: Spontaneous
  Country: US (occurrence: None)
  Receive Date: 20131001
  Receipt Date: 20131001
  Transmission Date: 20140711
  Serious: Yes (Death, Life-Threatening, Hospitalization)
  Sender: FDA-Public Use
  Company Number: None

PATIENT
  Age: 67 Year
  Sex: Male
  Weight: 101 kg

DRUGS (9)
  1. XARELTO [Suspect]
     Indication: DEEP VEIN THROMBOSIS
     Dosage: 1 TABLET
     Route: 048
     Dates: start: 20130807, end: 20130917
  2. ALBUTEROL [Concomitant]
  3. FORMOTEROL [Concomitant]
  4. HYDROCHLOROTHIAZIDE- LISINOPRIL [Concomitant]
  5. TIOTROPIUM [Concomitant]
  6. ATORVASTATIN [Concomitant]
  7. DIVALPROEX SODIUM 500 MG [Concomitant]
  8. DIVALPROEX SODIUM 250 MG [Concomitant]
  9. ASPIRIN [Concomitant]

REACTIONS (3)
  - Haematochezia [None]
  - Respiratory distress [None]
  - Anaemia [None]
